FAERS Safety Report 16989342 (Version 2)
Quarter: 2021Q3

REPORT INFORMATION
  Report Type: Spontaneous
  Country: US (occurrence: US)
  Receive Date: 20191104
  Receipt Date: 20210719
  Transmission Date: 20211014
  Serious: No
  Sender: FDA-Public Use
  Company Number: US-KYOWAKIRIN-2019BKK017035

PATIENT

DRUGS (6)
  1. CRYSVITA [Suspect]
     Active Substance: BUROSUMAB-TWZA
     Indication: HEREDITARY HYPOPHOSPHATAEMIC RICKETS
     Dosage: 50 MG. EVERY 28 DAYS (ONE 30 MG VIAL ALONG WITH ONE 20 MG VIAL)
     Route: 058
  2. CRYSVITA [Suspect]
     Active Substance: BUROSUMAB-TWZA
     Dosage: 50 MG, Q4W
     Route: 058
  3. CRYSVITA [Suspect]
     Active Substance: BUROSUMAB-TWZA
     Dosage: 60 MG, EVERY 28 DAYS
     Route: 058
  4. CRYSVITA [Suspect]
     Active Substance: BUROSUMAB-TWZA
     Dosage: 50 MG, EVERY 28 DAYS (ONE 30 MG VIAL ALONG WITH ONE 20 MG VIAL)
     Route: 058
  5. CRYSVITA [Suspect]
     Active Substance: BUROSUMAB-TWZA
     Indication: HEREDITARY HYPOPHOSPHATAEMIC RICKETS
     Dosage: UNKNOWN, Q4W
     Route: 058
     Dates: start: 201910
  6. CRYSVITA [Suspect]
     Active Substance: BUROSUMAB-TWZA
     Dosage: 60 MG, EVERY 28 DAYS
     Route: 058

REACTIONS (1)
  - Injection site bruising [Unknown]

NARRATIVE: CASE EVENT DATE: 20191018
